FAERS Safety Report 9817581 (Version 1)
Quarter: 2013Q4

REPORT INFORMATION
  Report Type: Spontaneous
  Country: US (occurrence: None)
  Receive Date: 20131223
  Receipt Date: 20131223
  Transmission Date: 20140711
  Serious: No
  Sender: FDA-Public Use
  Company Number: 219290

PATIENT
  Sex: Female

DRUGS (3)
  1. PICATO (0.015 %, GEL) [Suspect]
     Indication: PRECANCEROUS CELLS PRESENT
     Route: 061
     Dates: start: 20120927
  2. WELLBUTRIN (BUPROPION) [Concomitant]
  3. CYMBALTA(DULOXETINE HYDROCHLORIDE) [Concomitant]

REACTIONS (8)
  - Application site pain [None]
  - Application site pain [None]
  - Application site erythema [None]
  - Application site vesicles [None]
  - Application site irritation [None]
  - Application site scab [None]
  - Application site exfoliation [None]
  - Drug administered at inappropriate site [None]
